FAERS Safety Report 22106340 (Version 1)
Quarter: 2023Q1

REPORT INFORMATION
  Report Type: Spontaneous
  Country: US (occurrence: US)
  Receive Date: 20230317
  Receipt Date: 20230317
  Transmission Date: 20230418
  Serious: No
  Sender: FDA-Public Use
  Company Number: US-SA-SAC20230313000248

PATIENT
  Sex: Male
  Weight: 92.98 kg

DRUGS (11)
  1. DUPIXENT [Suspect]
     Active Substance: DUPILUMAB
     Indication: Dermatitis atopic
     Dosage: 300 MG, QOW
     Route: 058
     Dates: start: 2020
  2. AMITRIPTYLINE HYDROCHLORIDE [Concomitant]
     Active Substance: AMITRIPTYLINE HYDROCHLORIDE
  3. ATORVASTATIN CALCIUM [Concomitant]
     Active Substance: ATORVASTATIN CALCIUM
  4. ELIDEL [Concomitant]
     Active Substance: PIMECROLIMUS
  5. EPIDIOLEX [Concomitant]
     Active Substance: CANNABIDIOL
  6. EUCRISA [Concomitant]
     Active Substance: CRISABOROLE
  7. VITAMINS [Concomitant]
     Active Substance: VITAMINS
     Dosage: DAILY
  8. SERNIVO [Concomitant]
     Active Substance: BETAMETHASONE DIPROPIONATE
  9. UNITHROID [Concomitant]
     Active Substance: LEVOTHYROXINE SODIUM
  10. XALIX [Concomitant]
     Active Substance: SALICYLIC ACID
  11. LEVICYN ANTIPRURITIC GEL [Concomitant]

REACTIONS (1)
  - Dermatitis atopic [Unknown]
